FAERS Safety Report 11195017 (Version 1)
Quarter: 2015Q2

REPORT INFORMATION
  Report Type: Spontaneous
  Country: CA (occurrence: CA)
  Receive Date: 20150617
  Receipt Date: 20150617
  Transmission Date: 20150821
  Serious: Yes (Other)
  Sender: FDA-Public Use
  Company Number: CA-009507513-1506CAN006359

PATIENT
  Age: 53 Year
  Sex: Male

DRUGS (3)
  1. TEMODAL [Suspect]
     Active Substance: TEMOZOLOMIDE
     Dosage: 400 MG OD X 5/28, CYCLE 4-POST 36 CYCLES
     Route: 048
     Dates: start: 20120809
  2. TEMODAL [Suspect]
     Active Substance: TEMOZOLOMIDE
     Dosage: 400 MG OD X 5/28 X 3 CYCLES
     Route: 048
     Dates: start: 20120412, end: 20120605
  3. TEMODAL [Suspect]
     Active Substance: TEMOZOLOMIDE
     Indication: GLIOBLASTOMA
     Dosage: 400 MG ODX5 DS PER CYCLE
     Route: 048
     Dates: start: 20120130, end: 20120313

REACTIONS (7)
  - Weight increased [Recovering/Resolving]
  - Radiation necrosis [Unknown]
  - Malignant neoplasm progression [Unknown]
  - Headache [Recovered/Resolved]
  - Swelling face [Recovered/Resolved]
  - Neutropenia [Unknown]
  - Thrombocytopenia [Unknown]

NARRATIVE: CASE EVENT DATE: 2012
